FAERS Safety Report 17413441 (Version 1)
Quarter: 2020Q1

REPORT INFORMATION
  Report Type: Spontaneous
  Country: GB (occurrence: GB)
  Receive Date: 20200213
  Receipt Date: 20200213
  Transmission Date: 20200409
  Serious: Yes (Hospitalization)
  Sender: FDA-Public Use
  Company Number: GB-ASTRAZENECA-2019SE51167

PATIENT
  Age: 64 Year
  Sex: Female

DRUGS (25)
  1. LANSOPRAZOLE. [Concomitant]
     Active Substance: LANSOPRAZOLE
  2. DIAZEPAM. [Concomitant]
     Active Substance: DIAZEPAM
  3. ADCAL-D3 [Concomitant]
     Active Substance: CALCIUM CARBONATE\CHOLECALCIFEROL
  4. FOLIC ACID. [Concomitant]
     Active Substance: FOLIC ACID
  5. IBANDRONIC ACID MONOSODIUM SALT, MONOHYDRATE [Concomitant]
  6. CASSIA [Concomitant]
  7. LERCANIDIPINE HYDROCHLORIDE [Concomitant]
     Active Substance: LERCANIDIPINE HYDROCHLORIDE
  8. SALBUTAMOL [Concomitant]
     Active Substance: ALBUTEROL
  9. DAPAGLIFLOZIN. [Suspect]
     Active Substance: DAPAGLIFLOZIN
     Indication: TYPE 2 DIABETES MELLITUS
     Route: 048
     Dates: start: 20190128, end: 20190202
  10. BALMOSA [Concomitant]
  11. SERTRALINE HYDROCHLORIDE. [Concomitant]
     Active Substance: SERTRALINE HYDROCHLORIDE
  12. HUMALOG MIX75/25 [Concomitant]
     Active Substance: INSULIN LISPRO
  13. PREGABALIN. [Concomitant]
     Active Substance: PREGABALIN
  14. CYCLIZINE [Concomitant]
     Active Substance: CYCLIZINE
  15. TOLTERODINE [Concomitant]
     Active Substance: TOLTERODINE
  16. HYDROCORTISONE. [Concomitant]
     Active Substance: HYDROCORTISONE
  17. SIMVASTATIN. [Concomitant]
     Active Substance: SIMVASTATIN
  18. LISINOPRIL. [Concomitant]
     Active Substance: LISINOPRIL
  19. EZETIMIBE. [Concomitant]
     Active Substance: EZETIMIBE
  20. FERROUS FUMARATE [Concomitant]
     Active Substance: FERROUS FUMARATE
  21. COCODAMOL [Concomitant]
     Active Substance: ACETAMINOPHEN\CODEINE PHOSPHATE
  22. BUPRENORPHINE HYDROCHLORIDE. [Concomitant]
     Active Substance: BUPRENORPHINE HYDROCHLORIDE
  23. DULOXETINE HYDROCHLORIDE. [Concomitant]
     Active Substance: DULOXETINE HYDROCHLORIDE
  24. FUSIDIC ACID [Concomitant]
     Active Substance: FUSIDIC ACID
  25. MACROGOL 3350 [Concomitant]
     Active Substance: POLYETHYLENE GLYCOL 3350

REACTIONS (1)
  - Euglycaemic diabetic ketoacidosis [Recovered/Resolved]

NARRATIVE: CASE EVENT DATE: 20190128
